FAERS Safety Report 9740762 (Version 2)
Quarter: 2013Q4

REPORT INFORMATION
  Report Type: Spontaneous
  Country: GR (occurrence: GR)
  Receive Date: 20131209
  Receipt Date: 20131209
  Transmission Date: 20140711
  Serious: Yes (Other)
  Sender: FDA-Public Use
  Company Number: GR-PFIZER INC-2013303664

PATIENT
  Age: 80 Year
  Sex: Female

DRUGS (3)
  1. LIPITOR [Suspect]
     Dosage: 10 MG, UNK
     Dates: start: 2007
  2. LIPITOR [Suspect]
     Dosage: 20 MG, UNK
  3. PANADOL [Concomitant]
     Indication: ANALGESIC THERAPY
     Dosage: UNK

REACTIONS (3)
  - Leukopenia [Unknown]
  - Gastrointestinal disorder [Unknown]
  - Abdominal distension [Unknown]
